FAERS Safety Report 18646701 (Version 2)
Quarter: 2021Q1

REPORT INFORMATION
  Report Type: Spontaneous
  Country: DE (occurrence: DE)
  Receive Date: 20201222
  Receipt Date: 20210304
  Transmission Date: 20210419
  Serious: Yes (Hospitalization)
  Sender: FDA-Public Use
  Company Number: DE-ROCHE-2734606

PATIENT
  Age: 46 Year
  Sex: Male
  Weight: 83 kg

DRUGS (4)
  1. SATIVEX [Concomitant]
     Active Substance: NABIXIMOLS
     Indication: MULTIPLE SCLEROSIS
  2. LATANOPROST. [Concomitant]
     Active Substance: LATANOPROST
     Dosage: 50 MICROGRAM/ML
     Route: 047
  3. COLCHICIN [Concomitant]
     Active Substance: COLCHICINE
     Indication: BRUCELLOSIS
     Dosage: 1?0?1?0
  4. OCREVUS [Suspect]
     Active Substance: OCRELIZUMAB
     Indication: MULTIPLE SCLEROSIS
     Dosage: CURRENTLY PAUSED INDEFINETLY
     Route: 042
     Dates: start: 20191203

REACTIONS (1)
  - Meningitis [Recovering/Resolving]

NARRATIVE: CASE EVENT DATE: 202006
